FAERS Safety Report 22305051 (Version 5)
Quarter: 2023Q4

REPORT INFORMATION
  Report Type: Spontaneous
  Country: US (occurrence: US)
  Receive Date: 20230510
  Receipt Date: 20231208
  Transmission Date: 20240109
  Serious: No
  Sender: FDA-Public Use
  Company Number: US-PFIZER INC-PV202300082410

PATIENT
  Age: 70 Year
  Sex: Female
  Weight: 64.41 kg

DRUGS (1)
  1. IBRANCE [Suspect]
     Active Substance: PALBOCICLIB
     Dosage: 100 MG

REACTIONS (3)
  - COVID-19 [Unknown]
  - Memory impairment [Unknown]
  - Hypoacusis [Unknown]
